FAERS Safety Report 5195126-1 (Version None)
Quarter: 2006Q4

REPORT INFORMATION
  Report Type: 
  Country: None (occurrence: None)
  Receive Date: 20061229
  Receipt Date: 20051215
  Transmission Date: 20070319
  Serious: Yes (Other)
  Sender: FDA-Public Use
  Company Number: US-PFIZER INC-2005170543

PATIENT
  Sex: Female

DRUGS (8)
  1. NEURONTIN [Suspect]
     Indication: BIPOLAR DISORDER
  2. NEURONTIN [Suspect]
     Indication: DEPRESSION
  3. ALL OTHER THERAPEUTIC PRODUCTS [Suspect]
  4. ALPRAZOLAM [Concomitant]
  5. HYDROCODONE W/ACETYLSALICYLIC ACID [Concomitant]
  6. MIRTAZAPINE [Concomitant]
  7. PAROXETINE HCL [Concomitant]
  8. PAXIL [Concomitant]

REACTIONS (5)
  - CONVULSION [None]
  - DRUG INEFFECTIVE [None]
  - ENCEPHALOPATHY [None]
  - OVERDOSE [None]
  - SUICIDE ATTEMPT [None]
